FAERS Safety Report 6408724-1 (Version None)
Quarter: 2009Q4

REPORT INFORMATION
  Report Type: 
  Country: None (occurrence: None)
  Receive Date: 20091021
  Receipt Date: 20091015
  Transmission Date: 20100525
  Serious: Yes (Hospitalization)
  Sender: FDA-Public Use
  Company Number: US-BAYER-200931845NA

PATIENT
  Age: 76 Year
  Sex: Female

DRUGS (2)
  1. NEXAVAR [Suspect]
     Indication: HEPATIC NEOPLASM MALIGNANT
     Dosage: TOTAL DAILY DOSE: 800 MG  UNIT DOSE: 200 MG
     Route: 048
     Dates: start: 20090818
  2. NEXAVAR [Suspect]
     Dosage: AS USED: 400 / 200 MG  UNIT DOSE: 200 MG
     Route: 048

REACTIONS (6)
  - ABDOMINAL PAIN [None]
  - COLD SWEAT [None]
  - CONSTIPATION [None]
  - DEHYDRATION [None]
  - STOMATITIS [None]
  - VOMITING [None]
